FAERS Safety Report 6538985-X (Version None)
Quarter: 2010Q1

REPORT INFORMATION
  Report Type: 
  Country: None (occurrence: None)
  Receive Date: 20100115
  Receipt Date: 20100111
  Transmission Date: 20100710
  Serious: Yes (Other)
  Sender: FDA-Public Use
  Company Number: IN-BRISTOL-MYERS SQUIBB COMPANY-14928741

PATIENT
  Age: 15 Year
  Sex: Male

DRUGS (4)
  1. CYCLOPHOSPHAMIDE [Suspect]
     Indication: NON-HODGKIN'S LYMPHOMA
     Dosage: THREE 21-DAY CYCLES
     Route: 042
  2. DOXORUBICIN HCL [Suspect]
     Indication: NON-HODGKIN'S LYMPHOMA
     Dosage: THREE 21-DAY CYCLES
     Route: 042
  3. VINCRISTINE [Suspect]
     Indication: NON-HODGKIN'S LYMPHOMA
     Dosage: THREE 21-DAY CYCLES OF INTRAVENOUS (IV) VINCRISTINE SULFATE 2MG ON DAY 1
     Route: 042
  4. PREDNISOLONE [Suspect]
     Indication: NON-HODGKIN'S LYMPHOMA
     Dosage: THREE 21-DAY CYCLES
     Route: 042

REACTIONS (3)
  - FACIAL PALSY [None]
  - PLEURAL EFFUSION [None]
  - SUPERIOR VENA CAVAL OCCLUSION [None]
